FAERS Safety Report 8025973-X (Version None)
Quarter: 2012Q1

REPORT INFORMATION
  Report Type: 
  Country: None (occurrence: None)
  Receive Date: 20120105
  Receipt Date: 20110915
  Transmission Date: 20120608
  Serious: No
  Sender: FDA-Public Use
  Company Number: US-ABBOTT-11P-163-0855048-00

PATIENT
  Sex: Female

DRUGS (1)
  1. SYNTHROID [Suspect]
     Indication: AUTOIMMUNE THYROIDITIS
     Dosage: EVERY DAY EXCEPT SUNDAY
     Dates: start: 20110201

REACTIONS (3)
  - FEELING COLD [None]
  - ALOPECIA [None]
  - BRADYPHRENIA [None]
